FAERS Safety Report 8014094-8 (Version None)
Quarter: 2011Q4

REPORT INFORMATION
  Report Type: 
  Country: None (occurrence: None)
  Receive Date: 20111229
  Receipt Date: 20111222
  Transmission Date: 20120403
  Serious: Yes (Death, Hospitalization)
  Sender: FDA-Public Use
  Company Number: US-MPIJNJ-2011-06563

PATIENT
  Age: 82 Year
  Sex: Male

DRUGS (1)
  1. VELCADE [Suspect]
     Indication: PRODUCT USED FOR UNKNOWN INDICATION
     Dosage: 1.3 MG/M2, CYCLIC
     Route: 042
     Dates: start: 20110307, end: 20110418

REACTIONS (7)
  - DEATH [None]
  - RENAL IMPAIRMENT [None]
  - PNEUMONIA ASPIRATION [None]
  - TACHYCARDIA [None]
  - HYPERKALAEMIA [None]
  - HYPOXIA [None]
  - INTERNATIONAL NORMALISED RATIO INCREASED [None]
